FAERS Safety Report 20478202 (Version 2)
Quarter: 2022Q1

REPORT INFORMATION
  Report Type: Spontaneous
  Country: US (occurrence: None)
  Receive Date: 20220216
  Receipt Date: 20220226
  Transmission Date: 20220423
  Serious: Yes (Other)
  Sender: FDA-Public Use
  Company Number: US-ROCHE-3019834

PATIENT

DRUGS (1)
  1. OCREVUS [Suspect]
     Active Substance: OCRELIZUMAB
     Indication: Product used for unknown indication
     Route: 065

REACTIONS (8)
  - Spinal fusion surgery [Unknown]
  - White blood cell count decreased [Unknown]
  - Immunoglobulins decreased [Unknown]
  - Blood immunoglobulin M decreased [Unknown]
  - B-lymphocyte count decreased [Unknown]
  - B-lymphocyte count decreased [Unknown]
  - T-lymphocyte count decreased [Unknown]
  - Spinal disorder [Unknown]
